FAERS Safety Report 6873610-X (Version None)
Quarter: 2010Q3

REPORT INFORMATION
  Report Type: 
  Country: None (occurrence: None)
  Receive Date: 20100723
  Receipt Date: 20090410
  Transmission Date: 20110219
  Serious: No
  Sender: FDA-Public Use
  Company Number: US-PFIZER INC-2009154509

PATIENT
  Sex: Female
  Weight: 65.317 kg

DRUGS (3)
  1. CHANTIX [Suspect]
     Indication: SMOKING CESSATION THERAPY
     Dosage: 0.5 MG, UNK
     Dates: start: 20090109
  2. XANAX [Concomitant]
     Indication: ANXIETY
  3. DRUG, UNSPECIFIED [Concomitant]
     Dosage: UNK

REACTIONS (3)
  - ANXIETY [None]
  - FATIGUE [None]
  - STRESS [None]
